FAERS Safety Report 7029790-9 (Version None)
Quarter: 2010Q4

REPORT INFORMATION
  Report Type: 
  Country: None (occurrence: None)
  Receive Date: 20101001
  Receipt Date: 20100921
  Transmission Date: 20110411
  Serious: Yes (Death, Other)
  Sender: FDA-Public Use
  Company Number: FKO201000400

PATIENT
  Age: 70 Year
  Sex: Male

DRUGS (2)
  1. CARBOPLATIN [Suspect]
     Indication: TRANSITIONAL CELL CARCINOMA
     Dosage: (AUC 5)
  2. GEMCITABINE [Suspect]
     Indication: TRANSITIONAL CELL CARCINOMA
     Dosage: (1000 MG/M2,DAYS 1 AND 8)

REACTIONS (18)
  - ANAEMIA [None]
  - BLOOD BILIRUBIN INCREASED [None]
  - BLOOD LACTATE DEHYDROGENASE INCREASED [None]
  - COAGULATION TEST ABNORMAL [None]
  - DEEP VEIN THROMBOSIS [None]
  - FEBRILE NEUTROPENIA [None]
  - HAEMATURIA [None]
  - HAEMOLYTIC URAEMIC SYNDROME [None]
  - KLEBSIELLA TEST POSITIVE [None]
  - LEUKOPENIA [None]
  - METABOLIC ACIDOSIS [None]
  - METASTASES TO BONE [None]
  - OLIGURIA [None]
  - PURPURA [None]
  - RENAL FAILURE [None]
  - RETICULOCYTE PERCENTAGE INCREASED [None]
  - THROMBOCYTOPENIA [None]
  - URAEMIC ENCEPHALOPATHY [None]
